FAERS Safety Report 5632823-5 (Version None)
Quarter: 2008Q1

REPORT INFORMATION
  Report Type: 
  Country: None (occurrence: None)
  Receive Date: 20080221
  Receipt Date: 20080211
  Transmission Date: 20080703
  Serious: Yes (Other)
  Sender: FDA-Public Use
  Company Number: US-JNJFOC-20080202417

PATIENT
  Sex: Male
  Weight: 67.59 kg

DRUGS (1)
  1. REMICADE [Suspect]
     Indication: CROHN'S DISEASE
     Route: 041

REACTIONS (3)
  - GASTRIC OPERATION [None]
  - NAUSEA [None]
  - PSORIASIS [None]
